FAERS Safety Report 5853610-9 (Version None)
Quarter: 2008Q3

REPORT INFORMATION
  Report Type: 
  Country: None (occurrence: None)
  Receive Date: 20080822
  Receipt Date: 20080813
  Transmission Date: 20090109
  Serious: Yes (Hospitalization, Other)
  Sender: FDA-Public Use
  Company Number: US-JNJFOC-20080803339

PATIENT
  Age: 79 Year
  Sex: Female

DRUGS (4)
  1. REMICADE [Suspect]
     Indication: CROHN'S DISEASE
     Route: 042
  2. CRESTOR [Concomitant]
  3. CYMBALTA [Concomitant]
  4. MULTI-VITAMIN [Concomitant]

REACTIONS (3)
  - CYANOSIS [None]
  - HOSPITALISATION [None]
  - INFUSION RELATED REACTION [None]
